APPROVED DRUG PRODUCT: SUCRALFATE
Active Ingredient: SUCRALFATE
Strength: 1GM/10ML
Dosage Form/Route: SUSPENSION;ORAL
Application: A209356 | Product #001 | TE Code: AB
Applicant: AMNEAL PHARMACEUTICALS LLC
Approved: Dec 2, 2019 | RLD: No | RS: No | Type: RX